FAERS Safety Report 24978166 (Version 4)
Quarter: 2025Q1

REPORT INFORMATION
  Report Type: Report from Study
  Country: US (occurrence: US)
  Receive Date: 20250217
  Receipt Date: 20250314
  Transmission Date: 20250409
  Serious: Yes (Hospitalization)
  Sender: IOVANCE BIOTHERAPEUTICS MANUFACTURING LLC
  Company Number: US-IOVANCE BIOTHERAPEUTICS INC.-IOV2025000017

PATIENT
  Age: 57 Year
  Sex: Male

DRUGS (4)
  1. ALDESLEUKIN [Suspect]
     Active Substance: ALDESLEUKIN
     Indication: Adenocarcinoma
     Route: 042
     Dates: start: 20250128, end: 20250131
  2. CYCLOPHOSPHAMIDE [Suspect]
     Active Substance: CYCLOPHOSPHAMIDE
     Indication: Adenocarcinoma
     Route: 042
     Dates: start: 20250122, end: 20250124
  3. FLUDARABINE [Suspect]
     Active Substance: FLUDARABINE PHOSPHATE
     Indication: Adenocarcinoma
     Route: 042
     Dates: start: 20250122, end: 20250125
  4. LIFILEUCEL [Suspect]
     Active Substance: LIFILEUCEL
     Indication: Adenocarcinoma
     Route: 042
     Dates: start: 20250127, end: 20250127

REACTIONS (7)
  - Gastroenteritis Escherichia coli [Unknown]
  - Bronchospasm [Recovered/Resolved]
  - Clostridium difficile infection [Recovered/Resolved]
  - Lung infiltration [Recovered/Resolved]
  - Pyrexia [Recovered/Resolved]
  - Neutropenia [Unknown]
  - Chills [Unknown]

NARRATIVE: CASE EVENT DATE: 20250128
